FAERS Safety Report 23046732 (Version 1)
Quarter: 2023Q4

REPORT INFORMATION
  Report Type: Spontaneous
  Country: US (occurrence: US)
  Receive Date: 20231009
  Receipt Date: 20231009
  Transmission Date: 20240109
  Serious: No
  Sender: FDA-Public Use
  Company Number: US-Kaleo, Inc.-2022KL000065

PATIENT
  Age: 23 Year
  Sex: Female

DRUGS (1)
  1. AUVI-Q [Suspect]
     Active Substance: EPINEPHRINE
     Dates: start: 20220823, end: 20220823

REACTIONS (3)
  - Accidental exposure to product [Recovered/Resolved]
  - Injection site bruising [Unknown]
  - Feeling jittery [Unknown]

NARRATIVE: CASE EVENT DATE: 20220823
